FAERS Safety Report 10017611 (Version 1)
Quarter: 2014Q1

REPORT INFORMATION
  Report Type: Spontaneous
  Country: US (occurrence: US)
  Receive Date: 20140318
  Receipt Date: 20140318
  Transmission Date: 20141002
  Serious: Yes (Life-Threatening)
  Sender: FDA-Public Use
  Company Number: US-BRISTOL-MYERS SQUIBB COMPANY-17398074

PATIENT
  Age: 5 Decade
  Sex: Male

DRUGS (5)
  1. ERBITUX [Suspect]
     Indication: HEAD AND NECK CANCER
  2. ALBUTEROL [Concomitant]
     Indication: PREMEDICATION
     Dosage: METER DOSE INHALER
  3. PEPCID [Concomitant]
     Indication: PREMEDICATION
  4. BENADRYL [Concomitant]
     Indication: PREMEDICATION
  5. DIPHENHYDRAMINE [Concomitant]
     Indication: PREMEDICATION
     Route: 042

REACTIONS (5)
  - Blood pressure immeasurable [Recovered/Resolved]
  - Respiratory failure [Recovered/Resolved]
  - Pulse absent [Recovered/Resolved]
  - Loss of consciousness [Recovered/Resolved]
  - Erythema [Recovered/Resolved]
